FAERS Safety Report 7200593-5 (Version None)
Quarter: 2010Q4

REPORT INFORMATION
  Report Type: 
  Country: None (occurrence: None)
  Receive Date: 20101228
  Receipt Date: 20101216
  Transmission Date: 20110411
  Serious: Yes (Other)
  Sender: FDA-Public Use
  Company Number: CHPA2010MX19271

PATIENT
  Sex: Female

DRUGS (4)
  1. THERAFLU DM/PHENIR/PHENEPH (NCH) [Suspect]
     Dosage: 1 SACHET (20MG/20MG/10MG), QD
     Route: 048
     Dates: start: 20101201, end: 20101201
  2. LOSARTAN [Concomitant]
     Indication: HYPERTENSION
     Dosage: UNK, UNK
  3. METFORMIN [Concomitant]
     Indication: DIABETES MELLITUS
     Dosage: UNK, UNK
  4. METOPROLOL TARTRATE [Concomitant]
     Indication: DIABETES MELLITUS
     Dosage: UNK, UNK

REACTIONS (2)
  - BLINDNESS [None]
  - HEADACHE [None]
